FAERS Safety Report 6407359-4 (Version None)
Quarter: 2009Q4

REPORT INFORMATION
  Report Type: 
  Country: None (occurrence: None)
  Receive Date: 20091014
  Receipt Date: 20090930
  Transmission Date: 20100525
  Serious: Yes (Other)
  Sender: FDA-Public Use
  Company Number: 001953

PATIENT
  Age: 62 Year
  Sex: Female

DRUGS (3)
  1. OMEPRAZOLE [Suspect]
     Indication: GASTROOESOPHAGEAL REFLUX DISEASE
     Dosage: (ORAL)
     Route: 048
     Dates: start: 20080201, end: 20090717
  2. RAMIPRIL [Concomitant]
  3. OESTRADIOL  /00045401/ [Concomitant]

REACTIONS (2)
  - RENAL FAILURE CHRONIC [None]
  - TUBULOINTERSTITIAL NEPHRITIS [None]
